FAERS Safety Report 25562822 (Version 1)
Quarter: 2025Q3

REPORT INFORMATION
  Report Type: Report from Study
  Country: GB (occurrence: GB)
  Receive Date: 20250716
  Receipt Date: 20250716
  Transmission Date: 20251021
  Serious: Yes (Hospitalization)
  Sender: SAMSUNG BIOEPIS
  Company Number: GB-SAMSUNG BIOEPIS-SB-2025-21932

PATIENT
  Age: 14 Year
  Sex: Female

DRUGS (2)
  1. PYZCHIVA [Suspect]
     Active Substance: USTEKINUMAB-TTWE
     Indication: Psoriasis
     Route: 058
     Dates: start: 202503
  2. PYZCHIVA [Suspect]
     Active Substance: USTEKINUMAB-TTWE
     Route: 058

REACTIONS (3)
  - Syncope [Unknown]
  - Abdominal pain [Unknown]
  - Anaemia [Unknown]
